FAERS Safety Report 12985738 (Version 1)
Quarter: 2016Q4

REPORT INFORMATION
  Report Type: Spontaneous
  Country: US (occurrence: US)
  Receive Date: 20161130
  Receipt Date: 20161130
  Transmission Date: 20170207
  Serious: No
  Sender: FDA-Public Use
  Company Number: US-AMGEN-USASP2016167110

PATIENT
  Age: 75 Year
  Sex: Female

DRUGS (2)
  1. TRIAMCINOLONE [Concomitant]
     Active Substance: TRIAMCINOLONE
     Dosage: UNK
  2. ENBREL [Suspect]
     Active Substance: ETANERCEPT
     Indication: PSORIASIS
     Dosage: 50 MG, QWK
     Route: 058
     Dates: start: 20161019

REACTIONS (4)
  - Dry skin [Unknown]
  - Pain [Unknown]
  - Feeling abnormal [Unknown]
  - Papule [Unknown]

NARRATIVE: CASE EVENT DATE: 2016
